FAERS Safety Report 12208621 (Version 2)
Quarter: 2016Q1

REPORT INFORMATION
  Report Type: Not Available
  Country: IT (occurrence: IT)
  Receive Date: 20160324
  Receipt Date: 20160329
  Transmission Date: 20160526
  Serious: Yes (Death, Hospitalization)
  Sender: FDA-Public Use
  Company Number: IT-MUNDIPHARMA DS AND PHARMACOVIGILANCE-GBR-2016-0034742

PATIENT
  Age: 68 Year
  Sex: Male

DRUGS (4)
  1. PECFENT [Suspect]
     Active Substance: FENTANYL CITRATE
     Indication: CANCER PAIN
     Dosage: 100 MCG (AS NECESSARY AT FIRST ONE PUFF EVERY THREE DAYS)
     Route: 055
     Dates: start: 20151009, end: 20151021
  2. ABSTRAL [Suspect]
     Active Substance: FENTANYL CITRATE
     Indication: CANCER PAIN
     Dosage: 100 MCG, DAILY
     Route: 048
     Dates: start: 20151021, end: 20151112
  3. MS CONTIN [Suspect]
     Active Substance: MORPHINE SULFATE
     Indication: CANCER PAIN
     Dosage: 70 MG, BID (FOUR 10 MG TABLETS + ONE 30 MG TABLET)
     Route: 048
     Dates: start: 20151110, end: 20151112
  4. MS CONTIN [Suspect]
     Active Substance: MORPHINE SULFATE
     Dosage: 50 MG, BID (TWO 10 MG TABLETS + ONE 30 MG TABLET)
     Route: 048
     Dates: start: 20151105, end: 20151110

REACTIONS (4)
  - Hyperhidrosis [Unknown]
  - Sopor [Unknown]
  - Respiratory depression [Unknown]
  - Death [Fatal]

NARRATIVE: CASE EVENT DATE: 20151112
